FAERS Safety Report 21163317 (Version 1)
Quarter: 2022Q3

REPORT INFORMATION
  Report Type: Spontaneous
  Country: None (occurrence: US)
  Receive Date: 20220802
  Receipt Date: 20220802
  Transmission Date: 20221027
  Serious: No
  Sender: FDA-Public Use
  Company Number: US-Breckenridge Pharmaceutical, Inc.-2131455

PATIENT
  Age: 74 Year
  Sex: Female
  Weight: 72.57 kg

DRUGS (1)
  1. ALPRAZOLAM [Suspect]
     Active Substance: ALPRAZOLAM
     Indication: Anxiety
     Route: 048

REACTIONS (3)
  - Therapeutic product ineffective [Unknown]
  - Drug withdrawal syndrome [Unknown]
  - Therapeutic product ineffective [Unknown]
